FAERS Safety Report 12343579 (Version 2)
Quarter: 2016Q2

REPORT INFORMATION
  Report Type: Spontaneous
  Country: FR (occurrence: FR)
  Receive Date: 20160506
  Receipt Date: 20160531
  Transmission Date: 20160815
  Serious: Yes (Other)
  Sender: FDA-Public Use
  Company Number: FR-TAKEDA-2016TUS007660

PATIENT
  Age: 49 Year
  Sex: Female
  Weight: 122 kg

DRUGS (2)
  1. ADENURIC [Suspect]
     Active Substance: FEBUXOSTAT
     Indication: PRODUCT USED FOR UNKNOWN INDICATION
     Dosage: 80 MG, QD
     Route: 048
     Dates: start: 20160220, end: 20160318
  2. CHLORMADINONE ACETATE [Concomitant]
     Active Substance: CHLORMADINONE ACETATE
     Indication: ORAL CONTRACEPTION
     Dosage: 10 MG, QD
     Route: 065

REACTIONS (4)
  - Vulvovaginal pain [Recovered/Resolved]
  - Nodule [Recovered/Resolved]
  - Pruritus [Recovered/Resolved]
  - Vaginal lesion [Recovered/Resolved]

NARRATIVE: CASE EVENT DATE: 20160318
